FAERS Safety Report 12194366 (Version 1)
Quarter: 2016Q1

REPORT INFORMATION
  Report Type: Spontaneous
  Country: US (occurrence: None)
  Receive Date: 20160318
  Receipt Date: 20160318
  Transmission Date: 20160526
  Serious: No
  Sender: FDA-Public Use
  Company Number: None

PATIENT
  Age: 48 Year
  Sex: Male

DRUGS (1)
  1. STELARA [Suspect]
     Active Substance: USTEKINUMAB
     Indication: PSORIASIS
     Dosage: 45 MG AT WEEK 4 OF THERAPY SQ
     Route: 058
     Dates: start: 20160128

REACTIONS (1)
  - Drug dose omission [None]

NARRATIVE: CASE EVENT DATE: 201602
